FAERS Safety Report 10971101 (Version 2)
Quarter: 2015Q2

REPORT INFORMATION
  Report Type: Report from Study
  Country: IT (occurrence: IT)
  Receive Date: 20150331
  Receipt Date: 20150521
  Transmission Date: 20150821
  Serious: Yes (Other)
  Sender: FDA-Public Use
  Company Number: IT-ABBVIE-15P-083-1365279-00

PATIENT
  Age: 65 Year
  Sex: Female
  Weight: 62 kg

DRUGS (5)
  1. ABT-450/RITONAVIR/ABT-267 [Suspect]
     Active Substance: OMBITASVIR\PARITAPREVIR\RITONAVIR
     Indication: GLOMERULONEPHRITIS MEMBRANOPROLIFERATIVE
     Dosage: 150/100/25 MG QD
     Route: 048
     Dates: start: 20150316, end: 20150320
  2. ABT-333 [Suspect]
     Active Substance: DASABUVIR
     Indication: GLOMERULONEPHRITIS MEMBRANOPROLIFERATIVE
     Route: 048
     Dates: start: 20150316, end: 20150320
  3. ABT-333 [Suspect]
     Active Substance: DASABUVIR
     Indication: NEPHROTIC SYNDROME
  4. RIBAVIRIN. [Concomitant]
     Active Substance: RIBAVIRIN
     Indication: GLOMERULONEPHRITIS MEMBRANOPROLIFERATIVE
     Dosage: 200 MG X 2
     Route: 048
     Dates: start: 20150316, end: 20150320
  5. ABT-333 [Suspect]
     Active Substance: DASABUVIR
     Indication: HEPATITIS C

REACTIONS (8)
  - Hypertension [Unknown]
  - Oedema [Unknown]
  - Dyspnoea [Unknown]
  - Face oedema [Recovered/Resolved]
  - Localised oedema [Recovered/Resolved]
  - Tongue oedema [Recovered/Resolved]
  - Sense of oppression [Recovered/Resolved]
  - Hypotension [Not Recovered/Not Resolved]

NARRATIVE: CASE EVENT DATE: 20150319
